FAERS Safety Report 6227609-7 (Version None)
Quarter: 2009Q2

REPORT INFORMATION
  Report Type: 
  Country: None (occurrence: None)
  Receive Date: 20090610
  Receipt Date: 20090610
  Transmission Date: 20091009
  Serious: Yes (Other)
  Sender: FDA-Public Use
  Company Number: None

PATIENT
  Age: 52 Year
  Sex: Female
  Weight: 52 kg

DRUGS (11)
  1. CARBAMAZEPINE [Suspect]
     Indication: AFFECTIVE DISORDER
     Dosage: 200 MG TID PO PRIOR TO ADMISSION
     Route: 048
  2. CARBAMAZEPINE [Suspect]
     Indication: AFFECTIVE DISORDER
     Dosage: 400 MG QHS PO PRIOR TO ADMISSION
     Route: 048
  3. FOLIC ACID [Concomitant]
  4. MULTI-VITAMIN [Concomitant]
  5. LEVOTHYROXINE SODIUM [Concomitant]
  6. MIRTAZAPINE [Concomitant]
  7. SENNA [Concomitant]
  8. CALCIUM [Concomitant]
  9. VITAMIN D [Concomitant]
  10. DEBROX OTIC [Concomitant]
  11. WARFARIN SODIUM [Concomitant]

REACTIONS (2)
  - FEMUR FRACTURE [None]
  - PANCYTOPENIA [None]
